FAERS Safety Report 9095204 (Version 3)
Quarter: 2013Q1

REPORT INFORMATION
  Report Type: Spontaneous
  Country: DE (occurrence: None)
  Receive Date: 20130123
  Receipt Date: 20130319
  Transmission Date: 20140127
  Serious: Yes (Life-Threatening, Hospitalization)
  Sender: FDA-Public Use
  Company Number: AUR-APL-2013-00819

PATIENT
  Age: 76 Year
  Sex: Male
  Weight: 90 kg

DRUGS (4)
  1. CEFUROXIME [Suspect]
     Indication: PRODUCT USED FOR UNKNOWN INDICATION
     Dosage: 40 TABLETS IN TOTAL
     Route: 048
  2. MIRTAZAPINE [Suspect]
     Indication: DEPRESSION
     Route: 048
     Dates: start: 2004, end: 20120810
  3. IBUFLAM [Suspect]
     Indication: ARTHRALGIA
     Route: 048
  4. MARCUMAR [Concomitant]

REACTIONS (2)
  - Bone marrow failure [None]
  - Blood lactate dehydrogenase increased [None]
